FAERS Safety Report 9327543 (Version 2)
Quarter: 2013Q2

REPORT INFORMATION
  Report Type: Spontaneous
  Country: US (occurrence: US)
  Receive Date: 20130604
  Receipt Date: 20130612
  Transmission Date: 20140414
  Serious: Yes (Hospitalization, Other)
  Sender: FDA-Public Use
  Company Number: US-AMGEN-USASP2013034753

PATIENT
  Age: 61 Year
  Sex: Male
  Weight: 89.34 kg

DRUGS (5)
  1. ENBREL [Suspect]
     Indication: PSORIASIS
     Dosage: 50 MG, 2 TIMES/WK
     Route: 058
     Dates: start: 20130420, end: 20130510
  2. CRESTOR [Concomitant]
     Indication: LIPIDS INCREASED
     Dosage: 5 MG, QD
     Route: 048
     Dates: start: 2007
  3. ACTOS [Concomitant]
     Indication: TYPE 2 DIABETES MELLITUS
     Dosage: 15 MG Q AM , UNK
     Route: 048
     Dates: start: 2007
  4. RAMPRIL [Concomitant]
     Indication: HYPERTENSION
     Dosage: 5 MG, QD
     Route: 048
     Dates: start: 2007
  5. ASPIRIN [Concomitant]
     Dosage: 81 MG, QD
     Route: 048
     Dates: start: 2011

REACTIONS (7)
  - Pleural effusion [Recovered/Resolved]
  - Systemic lupus erythematosus [Unknown]
  - Thrombocytopenia [Recovered/Resolved]
  - Malaise [Unknown]
  - Fatigue [Unknown]
  - Injection site reaction [Unknown]
  - Antinuclear antibody positive [Not Recovered/Not Resolved]
